FAERS Safety Report 4885550-6 (Version None)
Quarter: 2006Q1

REPORT INFORMATION
  Report Type: 
  Country: None (occurrence: None)
  Receive Date: 20060119
  Receipt Date: 20051018
  Transmission Date: 20060701
  Serious: Yes (Hospitalization)
  Sender: FDA-Public Use
  Company Number: GB-MERCK-0510GBR00113

PATIENT
  Age: 53 Year
  Sex: Male

DRUGS (34)
  1. VIOXX [Suspect]
     Indication: OSTEOARTHRITIS
     Route: 048
     Dates: start: 19990702, end: 20000320
  2. VIOXX [Suspect]
     Route: 048
     Dates: start: 20020710, end: 20041001
  3. DIAZEPAM [Concomitant]
     Route: 065
  4. TRAMADOL HYDROCHLORIDE [Concomitant]
     Route: 065
  5. ORLISTAT [Concomitant]
     Route: 048
     Dates: end: 20000320
  6. CLARITHROMYCIN [Concomitant]
     Route: 065
     Dates: start: 20000324
  7. MOMETASONE FUROATE [Concomitant]
     Route: 065
     Dates: start: 20000626
  8. BENDROFLUMETHIAZIDE [Concomitant]
     Route: 065
  9. PREDNISOLONE [Concomitant]
     Route: 065
     Dates: end: 20040401
  10. ENALAPRIL MALEATE [Concomitant]
     Route: 065
  11. DOTHIEPIN HYDROCHLORIDE [Concomitant]
     Route: 065
  12. ENALAPRIL MALEATE AND HYDROCHLOROTHIAZIDE [Concomitant]
     Route: 065
  13. DIPHENHYDRAMINE HYDROCHLORIDE [Concomitant]
     Route: 065
  14. AMOXICILLIN [Concomitant]
     Route: 065
     Dates: start: 20010219
  15. CLOTRIMAZOLE AND HYDROCORTISONE [Concomitant]
     Route: 065
     Dates: start: 20040614
  16. ERYTHROMYCIN [Concomitant]
     Route: 065
     Dates: start: 20040607
  17. NICOTINE [Concomitant]
     Route: 065
     Dates: start: 20040614
  18. DIHYDROCODEINE [Concomitant]
     Route: 065
     Dates: start: 20040604
  19. VENLAFAXINE HYDROCHLORIDE [Concomitant]
     Route: 065
     Dates: start: 20040423, end: 20040628
  20. AMISULPRIDE [Concomitant]
     Route: 065
     Dates: start: 20040517, end: 20041028
  21. DOTHIEPIN HYDROCHLORIDE [Concomitant]
     Route: 065
  22. ATORVASTATIN CALCIUM [Concomitant]
     Route: 065
  23. FUROSEMIDE [Concomitant]
     Route: 065
  24. POLYETHYLENE GLYCOL 3350 AND POTASSIUM CHLORIDE AND SODIUM BICARBONATE [Concomitant]
     Route: 065
  25. OMEPRAZOLE [Concomitant]
     Route: 065
  26. NITROGLYCERIN [Concomitant]
     Route: 065
  27. HYDROCORTISONE ACETATE AND MICONAZOLE NITRATE [Concomitant]
     Route: 065
  28. ZOPICLONE [Concomitant]
     Route: 065
     Dates: end: 20040804
  29. SENNA [Concomitant]
     Route: 065
  30. ASPIRIN [Concomitant]
     Route: 065
  31. QUETIAPINE FUMARATE [Concomitant]
     Route: 065
     Dates: end: 20040423
  32. MORPHINE [Concomitant]
     Route: 065
  33. ACETAMINOPHEN AND DIHYDROCODEINE BITARTRATE [Concomitant]
     Route: 065
  34. DANTHRON AND POLOXAMER 188 [Concomitant]
     Route: 065

REACTIONS (24)
  - ACUTE MYOCARDIAL INFARCTION [None]
  - AGITATION [None]
  - ANGINA PECTORIS [None]
  - ANXIETY [None]
  - BLOOD CHOLESTEROL INCREASED [None]
  - BLOOD POTASSIUM DECREASED [None]
  - BLOOD TRIGLYCERIDES INCREASED [None]
  - BRONCHITIS [None]
  - CHEST DISCOMFORT [None]
  - CHEST PAIN [None]
  - CONDITION AGGRAVATED [None]
  - CONSTIPATION [None]
  - CORONARY ARTERY DISEASE [None]
  - DEPRESSION [None]
  - DIZZINESS [None]
  - ECZEMA [None]
  - HYPERHIDROSIS [None]
  - INSOMNIA [None]
  - MYOCARDIAL INFARCTION [None]
  - MYOCARDIAL ISCHAEMIA [None]
  - NECK PAIN [None]
  - ORAL CANDIDIASIS [None]
  - PHARYNGEAL ERYTHEMA [None]
  - PHARYNGOLARYNGEAL PAIN [None]
